FAERS Safety Report 17244312 (Version 2)
Quarter: 2020Q1

REPORT INFORMATION
  Report Type: Spontaneous
  Country: US (occurrence: US)
  Receive Date: 20200107
  Receipt Date: 20200331
  Transmission Date: 20200409
  Serious: Yes (Other)
  Sender: FDA-Public Use
  Company Number: US-GILEAD-2019-0444768

PATIENT
  Age: 57 Year
  Sex: Female

DRUGS (18)
  1. FLUPHENAZINE [Concomitant]
     Active Substance: FLUPHENAZINE
  2. DIPHENHYDRAMINE. [Concomitant]
     Active Substance: DIPHENHYDRAMINE
  3. TRUVADA [Suspect]
     Active Substance: EMTRICITABINE\TENOFOVIR DISOPROXIL FUMARATE
     Indication: HIV INFECTION
     Dosage: UNK
     Route: 048
     Dates: start: 201001, end: 20170915
  4. RALTEGRAVIR. [Concomitant]
     Active Substance: RALTEGRAVIR
  5. ISENTRESS [Concomitant]
     Active Substance: RALTEGRAVIR POTASSIUM
  6. LORATADINE. [Concomitant]
     Active Substance: LORATADINE
  7. CLINDAMYCIN. [Concomitant]
     Active Substance: CLINDAMYCIN
  8. AMLODIPINE [Concomitant]
     Active Substance: AMLODIPINE BESYLATE
  9. BENZTROPINE MESYLATE. [Concomitant]
     Active Substance: BENZTROPINE MESYLATE
  10. IBU [Concomitant]
     Active Substance: IBUPROFEN
  11. DOXYCYCLINE. [Concomitant]
     Active Substance: DOXYCYCLINE
  12. PREDNISONE. [Concomitant]
     Active Substance: PREDNISONE
  13. NAPROXEN. [Concomitant]
     Active Substance: NAPROXEN
  14. PROLIXIN [FLUPHENAZINE HYDROCHLORIDE] [Concomitant]
  15. BIKTARVY [Concomitant]
     Active Substance: BICTEGRAVIR SODIUM\EMTRICITABINE\TENOFOVIR ALAFENAMIDE FUMARATE
  16. DESCOVY [Concomitant]
     Active Substance: EMTRICITABINE\TENOFOVIR ALAFENAMIDE FUMARATE
  17. OMEPRAZOLE. [Concomitant]
     Active Substance: OMEPRAZOLE
  18. TIVICAY [Concomitant]
     Active Substance: DOLUTEGRAVIR SODIUM

REACTIONS (7)
  - Emotional distress [Unknown]
  - Pain [Unknown]
  - Anxiety [Unknown]
  - Osteomalacia [Recovered/Resolved]
  - Economic problem [Unknown]
  - Osteoarthritis [Unknown]
  - Anhedonia [Unknown]

NARRATIVE: CASE EVENT DATE: 20170509
